FAERS Safety Report 7412208-1 (Version None)
Quarter: 2011Q2

REPORT INFORMATION
  Report Type: 
  Country: None (occurrence: None)
  Receive Date: 20110413
  Receipt Date: 20110331
  Transmission Date: 20111010
  Serious: Yes (Hospitalization)
  Sender: FDA-Public Use
  Company Number: FR-ELI_LILLY_AND_COMPANY-FR201103008718

PATIENT
  Sex: Female

DRUGS (6)
  1. KARDEGIC [Concomitant]
  2. XANAX [Concomitant]
  3. CORDARONE [Concomitant]
  4. COAPROVEL [Concomitant]
  5. TANGANIL [Concomitant]
  6. CYMBALTA [Suspect]
     Indication: DEPRESSION
     Dosage: 30 MG, QD
     Route: 048
     Dates: start: 20110115, end: 20110226

REACTIONS (2)
  - HYPONATRAEMIA [None]
  - HYPOKALAEMIA [None]
